FAERS Safety Report 7889534-5 (Version None)
Quarter: 2011Q4

REPORT INFORMATION
  Report Type: 
  Country: None (occurrence: None)
  Receive Date: 20111103
  Receipt Date: 20100920
  Transmission Date: 20120403
  Serious: No
  Sender: FDA-Public Use
  Company Number: US-BRISTOL-MYERS SQUIBB COMPANY-15296387

PATIENT
  Age: 59 Year
  Sex: Female

DRUGS (3)
  1. CELEXA [Concomitant]
     Dosage: TABS
  2. ZITHROMAX [Concomitant]
     Dosage: ZITHROMAX Z-PAK 250 MG PKT (S)AS DIR
  3. KENALOG-40 [Suspect]
     Indication: URTICARIA
     Dosage: 40MG:08SEP2008
     Route: 030
     Dates: start: 20080902

REACTIONS (4)
  - INJECTION SITE PAIN [None]
  - INJECTION SITE ATROPHY [None]
  - INJECTION SITE HAEMATOMA [None]
  - INJECTION SITE DISCOLOURATION [None]
